FAERS Safety Report 6436168-5 (Version None)
Quarter: 2009Q4

REPORT INFORMATION
  Report Type: 
  Country: None (occurrence: None)
  Receive Date: 20091111
  Receipt Date: 20091029
  Transmission Date: 20100525
  Serious: Yes (Other)
  Sender: FDA-Public Use
  Company Number: BR-PFIZER INC-2009290265

PATIENT
  Age: 34 Year
  Sex: Female
  Weight: 53.016 kg

DRUGS (2)
  1. DOSTINEX [Suspect]
     Indication: PITUITARY TUMOUR
     Dosage: 2 MG, WEEKLY
     Route: 048
     Dates: start: 19970101
  2. TOCOPHERYL ACETATE [Concomitant]
     Dosage: UNK

REACTIONS (2)
  - BLOOD PROLACTIN INCREASED [None]
  - MENSTRUATION IRREGULAR [None]
